FAERS Safety Report 6494433-X (Version None)
Quarter: 2009Q4

REPORT INFORMATION
  Report Type: 
  Country: None (occurrence: None)
  Receive Date: 20091214
  Receipt Date: 20090323
  Transmission Date: 20100525
  Serious: No
  Sender: FDA-Public Use
  Company Number: US-BRISTOL-MYERS SQUIBB COMPANY-14511315

PATIENT
  Age: 16 Year
  Sex: Male

DRUGS (4)
  1. ABILIFY [Suspect]
     Indication: BIPOLAR DISORDER
     Dosage: NIGHT AT BED TIME.
     Route: 048
     Dates: start: 20030707
  2. ABILIFY [Suspect]
     Indication: ATTENTION DEFICIT/HYPERACTIVITY DISORDER
     Dosage: NIGHT AT BED TIME.
     Route: 048
     Dates: start: 20030707
  3. ADDERALL 10 [Concomitant]
  4. ZYRTEC [Concomitant]

REACTIONS (1)
  - DELAYED PUBERTY [None]
